FAERS Safety Report 22621981 (Version 1)
Quarter: 2023Q2

REPORT INFORMATION
  Report Type: Spontaneous
  Country: CA (occurrence: CA)
  Receive Date: 20230620
  Receipt Date: 20230620
  Transmission Date: 20230721
  Serious: No
  Sender: FDA-Public Use
  Company Number: CA-Kaleo, Inc.-2023KL000032

PATIENT
  Age: 11 Year
  Sex: Female

DRUGS (1)
  1. EPINEPHRINE [Suspect]
     Active Substance: EPINEPHRINE

REACTIONS (1)
  - Device audio issue [Not Recovered/Not Resolved]

NARRATIVE: CASE EVENT DATE: 20230101
